FAERS Safety Report 4850541-8 (Version None)
Quarter: 2005Q4

REPORT INFORMATION
  Report Type: 
  Country: None (occurrence: None)
  Receive Date: 20051208
  Receipt Date: 20051121
  Transmission Date: 20060501
  Serious: Yes (Hospitalization)
  Sender: FDA-Public Use
  Company Number: DSA_27459_2005

PATIENT
  Age: 29 Year
  Sex: Female

DRUGS (4)
  1. LORAZEPAM [Suspect]
     Dosage: 3 MG ONCE PO
     Route: 048
     Dates: start: 20051120, end: 20051120
  2. ATOSIL [Suspect]
     Dosage: DF ONCE PO
     Route: 048
     Dates: start: 20051120, end: 20051120
  3. CLOZAPINE [Suspect]
     Dosage: DF ONCE PO
     Route: 048
     Dates: start: 20051120, end: 20051120
  4. SOLIAN [Suspect]
     Dosage: DF ONCE PO
     Route: 048
     Dates: start: 20051120, end: 20051120

REACTIONS (3)
  - OVERDOSE [None]
  - SOMNOLENCE [None]
  - TACHYCARDIA [None]
